FAERS Safety Report 6196373-2 (Version None)
Quarter: 2009Q2

REPORT INFORMATION
  Report Type: 
  Country: None (occurrence: None)
  Receive Date: 20090520
  Receipt Date: 20090513
  Transmission Date: 20091009
  Serious: Yes (Life-Threatening, Hospitalization)
  Sender: FDA-Public Use
  Company Number: KR-BRISTOL-MYERS SQUIBB COMPANY-14246367

PATIENT
  Age: 56 Year
  Sex: Male
  Weight: 44 kg

DRUGS (2)
  1. ERBITUX [Suspect]
     Indication: HYPOPHARYNGEAL CANCER
     Route: 042
     Dates: start: 20080623
  2. CISPLATIN [Suspect]
     Indication: HYPOPHARYNGEAL CANCER
     Route: 042
     Dates: start: 20080623

REACTIONS (3)
  - MENINGITIS BACTERIAL [None]
  - SEPTIC SHOCK [None]
  - SKIN REACTION [None]
